FAERS Safety Report 9742311 (Version 2)
Quarter: 2014Q1

REPORT INFORMATION
  Report Type: Spontaneous
  Country: DE (occurrence: DE)
  Receive Date: 20131210
  Receipt Date: 20140203
  Transmission Date: 20141002
  Serious: Yes (Other)
  Sender: FDA-Public Use
  Company Number: DE-ELI_LILLY_AND_COMPANY-DE201311009595

PATIENT
  Age: 42 Year
  Sex: Male

DRUGS (7)
  1. STRATTERA [Suspect]
     Indication: ATTENTION DEFICIT/HYPERACTIVITY DISORDER
     Dosage: 10 MG, WEEKLY (1/W)
     Dates: start: 20131015
  2. STRATTERA [Suspect]
     Dosage: 18 MG, WEEKLY (1/W)
  3. STRATTERA [Suspect]
     Dosage: 25 MG, WEEKLY (1/W)
  4. STRATTERA [Suspect]
     Dosage: 40 MG, QD
     Route: 048
  5. CITALOPRAM [Concomitant]
     Indication: PRODUCT USED FOR UNKNOWN INDICATION
     Dosage: 12.5 MG, UNKNOWN
     Route: 065
     Dates: start: 2012
  6. CITALOPRAM [Concomitant]
     Dosage: 10 MG, UNKNOWN
     Route: 065
  7. LYRICA [Concomitant]
     Indication: PRODUCT USED FOR UNKNOWN INDICATION
     Dosage: 150 MG, UNKNOWN
     Route: 065

REACTIONS (3)
  - Gamma-glutamyltransferase increased [Recovered/Resolved]
  - Blood pressure increased [Recovered/Resolved]
  - Heart rate increased [Recovered/Resolved]
